FAERS Safety Report 4297266-8 (Version None)
Quarter: 2004Q1

REPORT INFORMATION
  Report Type: 
  Country: None (occurrence: None)
  Receive Date: 20040213
  Receipt Date: 20040202
  Transmission Date: 20041129
  Serious: Yes (Other)
  Sender: FDA-Public Use
  Company Number: CIP04000158

PATIENT
  Age: 53 Year
  Sex: Female

DRUGS (4)
  1. ACTONEL [Suspect]
     Indication: OSTEOPENIA
     Dosage: 35 MG ONCE WEEKLY, ORAL
     Route: 048
     Dates: end: 20040123
  2. ACTONEL [Suspect]
     Indication: OSTEOPENIA
     Dosage: 30 MG ONCE WEEKLY, ORAL
     Route: 048
     Dates: start: 19990101
  3. SYNTHROID [Concomitant]
  4. VITAMIN D, 50,000 [Concomitant]

REACTIONS (6)
  - ASTHENIA [None]
  - MUSCLE CRAMP [None]
  - NERVE INJURY [None]
  - NEUROPATHY [None]
  - PERONEAL NERVE PALSY [None]
  - URTICARIA [None]
